FAERS Safety Report 5025121-4 (Version None)
Quarter: 2006Q2

REPORT INFORMATION
  Report Type: 
  Country: None (occurrence: None)
  Receive Date: 20060609
  Receipt Date: 20060609
  Transmission Date: 20061013
  Serious: Yes (Life-Threatening, Hospitalization, Disabling)
  Sender: FDA-Public Use
  Company Number: None

PATIENT
  Age: 59 Year
  Sex: Male
  Weight: 128.9576 kg

DRUGS (1)
  1. ADENOSCAN [Suspect]
     Indication: CARDIAC STRESS TEST
     Dosage: 0.14MG/KG PER MINUTE IV DRIP
     Route: 041
     Dates: start: 20060607, end: 20060607

REACTIONS (5)
  - APNOEA [None]
  - CARDIO-RESPIRATORY ARREST [None]
  - CYANOSIS [None]
  - DYSPNOEA [None]
  - INFUSION RELATED REACTION [None]
